FAERS Safety Report 13500009 (Version 1)
Quarter: 2017Q2

REPORT INFORMATION
  Report Type: Spontaneous
  Country: US (occurrence: US)
  Receive Date: 20170501
  Receipt Date: 20170501
  Transmission Date: 20170830
  Serious: Yes (Other)
  Sender: FDA-Public Use
  Company Number: US-THE MENTHOLATUM COMPANY-2020041

PATIENT
  Age: 59 Year
  Sex: Female
  Weight: 120.91 kg

DRUGS (1)
  1. EQUATE VAPORIZING [Suspect]
     Active Substance: CAMPHOR (SYNTHETIC)\EUCALYPTUS OIL\MENTHOL
     Indication: ARTHRITIS
     Route: 061
     Dates: start: 20170328, end: 20170411

REACTIONS (1)
  - Application site swelling [Unknown]

NARRATIVE: CASE EVENT DATE: 20170411
